FAERS Safety Report 5806966-7 (Version None)
Quarter: 2008Q3

REPORT INFORMATION
  Report Type: 
  Country: None (occurrence: None)
  Receive Date: 20080711
  Receipt Date: 20080701
  Transmission Date: 20090109
  Serious: Yes (Death)
  Sender: FDA-Public Use
  Company Number: US-WYE-H04410408

PATIENT
  Sex: Female
  Weight: 110.78 kg

DRUGS (8)
  1. PRISTIQ [Suspect]
     Indication: DEPRESSION
     Route: 048
     Dates: start: 20080529
  2. PRISTIQ [Suspect]
     Indication: HEADACHE
  3. PRISTIQ [Suspect]
     Indication: PROPHYLAXIS
  4. PHENERGAN HCL [Concomitant]
     Dosage: 50 MG EVERY 6 HOURS AS NEEDED
     Route: 048
  5. LORTAB [Concomitant]
     Indication: PAIN
  6. TOPAMAX [Concomitant]
     Indication: MIGRAINE
     Dates: start: 20080529
  7. TOPAMAX [Concomitant]
     Indication: PROPHYLAXIS
  8. ATENOLOL [Concomitant]
     Indication: HYPERTENSION

REACTIONS (3)
  - CORONARY ARTERY DISEASE [None]
  - HYPERTENSIVE HEART DISEASE [None]
  - SUDDEN CARDIAC DEATH [None]
